FAERS Safety Report 17211169 (Version 1)
Quarter: 2019Q4

REPORT INFORMATION
  Report Type: Spontaneous
  Country: US (occurrence: US)
  Receive Date: 20191228
  Receipt Date: 20191228
  Transmission Date: 20200122
  Serious: Yes (Death, Life-Threatening, Hospitalization, Other)
  Sender: FDA-Public Use
  Company Number: US-SCIEGEN PHARMACEUTICALS INC-2019SCILIT00389

PATIENT
  Age: 25 Year
  Sex: Male

DRUGS (6)
  1. GABAPENTIN TABLETS [Suspect]
     Active Substance: GABAPENTIN
  2. IV FLUIDS [Interacting]
     Active Substance: UNSPECIFIED INGREDIENT
  3. OPIOIDS [Interacting]
     Active Substance: UNSPECIFIED INGREDIENT
  4. HEROIN [Suspect]
     Active Substance: DIAMORPHINE
  5. BENZODIAZEPINES [Interacting]
     Active Substance: BENZODIAZEPINE
  6. FENTANYL. [Suspect]
     Active Substance: FENTANYL

REACTIONS (6)
  - Brain death [Fatal]
  - Toxicity to various agents [Fatal]
  - Coma [Unknown]
  - Hypotension [Unknown]
  - Depressed level of consciousness [Unknown]
  - Ventricular arrhythmia [Unknown]
